FAERS Safety Report 8447133-0 (Version None)
Quarter: 2012Q2

REPORT INFORMATION
  Report Type: 
  Country: None (occurrence: None)
  Receive Date: 20120619
  Receipt Date: 20120612
  Transmission Date: 20120825
  Serious: No
  Sender: FDA-Public Use
  Company Number: US-PFIZER INC-2012113565

PATIENT
  Sex: Female
  Weight: 83.9 kg

DRUGS (1)
  1. IBUPROFEN (ADVIL) [Suspect]
     Indication: MYALGIA
     Dosage: 200 MG, 3X/DAY
     Route: 048
     Dates: end: 20120507

REACTIONS (2)
  - GLOSSODYNIA [None]
  - POOR QUALITY DRUG ADMINISTERED [None]
